FAERS Safety Report 21981447 (Version 1)
Quarter: 2023Q1

REPORT INFORMATION
  Report Type: Other
  Country: None (occurrence: US)
  Receive Date: 20230211
  Receipt Date: 20230211
  Transmission Date: 20230417
  Serious: Yes (Hospitalization, Other)
  Sender: FDA-Public Use
  Company Number: US-Appco Pharma LLC-2137783

PATIENT
  Age: 57 Year
  Sex: Female

DRUGS (1)
  1. BACLOFEN [Suspect]
     Active Substance: BACLOFEN
     Indication: Muscle spasms
     Route: 065

REACTIONS (7)
  - Anuria [Unknown]
  - Shock [Unknown]
  - Mental status changes [Recovered/Resolved]
  - Overdose [Unknown]
  - Respiratory failure [Unknown]
  - Lethargy [Unknown]
  - Seizure [Unknown]
